FAERS Safety Report 11687414 (Version 8)
Quarter: 2015Q4

REPORT INFORMATION
  Report Type: Spontaneous
  Country: VN (occurrence: KH)
  Receive Date: 20151030
  Receipt Date: 20151228
  Transmission Date: 20160304
  Serious: Yes (Death, Life-Threatening, Hospitalization, Other)
  Sender: FDA-Public Use
  Company Number: VN-ASTELLAS-2015US039896

PATIENT
  Age: 53 Year
  Sex: Male

DRUGS (14)
  1. PROGRAF [Suspect]
     Active Substance: TACROLIMUS\TACROLIMUS ANHYDROUS
     Dosage: 3 MG, MORNING
     Route: 065
     Dates: start: 20151116
  2. PREDNISOLONE. [Concomitant]
     Active Substance: PREDNISOLONE
     Indication: DIABETES MELLITUS
  3. CELLCEPT [Concomitant]
     Active Substance: MYCOPHENOLATE MOFETIL\MYCOPHENOLATE MOFETIL HYDROCHLORIDE
     Indication: RENAL TRANSPLANT
  4. PREDNISOLONE. [Concomitant]
     Active Substance: PREDNISOLONE
     Indication: PNEUMONIA
     Dosage: 15 MG (DAILY DOSE), UNKNOWN FREQ.
     Route: 050
     Dates: start: 20151020
  5. PROGRAF [Suspect]
     Active Substance: TACROLIMUS\TACROLIMUS ANHYDROUS
     Indication: DIABETES MELLITUS
     Dosage: 2 MG, (MORNING)
     Route: 065
     Dates: start: 20151109
  6. MEDROL [Concomitant]
     Active Substance: METHYLPREDNISOLONE
     Indication: RENAL TRANSPLANT
  7. PROGRAF [Suspect]
     Active Substance: TACROLIMUS\TACROLIMUS ANHYDROUS
     Indication: IMMUNOSUPPRESSANT DRUG THERAPY
     Dosage: 3 MG (DAILY DOSE), UNKNOWN FREQ.
     Route: 050
     Dates: start: 20151020, end: 20151027
  8. CELLCEPT [Concomitant]
     Active Substance: MYCOPHENOLATE MOFETIL\MYCOPHENOLATE MOFETIL HYDROCHLORIDE
     Indication: PNEUMONIA
     Dosage: 1.5 G DAILY DOSE, UNKNOWN FREQ.
     Route: 050
     Dates: start: 20151020
  9. MEDROL [Concomitant]
     Active Substance: METHYLPREDNISOLONE
     Indication: PNEUMONIA
     Dosage: 16 MG (DAILY DOSE), UNKNOWN FREQ.
     Route: 050
     Dates: start: 20151020
  10. PROGRAF [Suspect]
     Active Substance: TACROLIMUS\TACROLIMUS ANHYDROUS
     Indication: RENAL TRANSPLANT
     Dosage: 1 MG, (MORNING)
     Route: 065
     Dates: start: 20151112
  11. CELLCEPT [Concomitant]
     Active Substance: MYCOPHENOLATE MOFETIL\MYCOPHENOLATE MOFETIL HYDROCHLORIDE
     Indication: DIABETES MELLITUS
     Dosage: 3 G DAILY DOSE, UNKNOWN FREQ
     Route: 050
  12. MEDROL [Concomitant]
     Active Substance: METHYLPREDNISOLONE
     Indication: DIABETES MELLITUS
  13. PREDNISOLONE. [Concomitant]
     Active Substance: PREDNISOLONE
     Indication: RENAL TRANSPLANT
  14. PROGRAF [Suspect]
     Active Substance: TACROLIMUS\TACROLIMUS ANHYDROUS
     Indication: PNEUMONIA
     Dosage: 4 MG, UNKNOWN FREQ.
     Route: 050
     Dates: start: 20151028, end: 20151106

REACTIONS (13)
  - Renal transplant [Unknown]
  - Pneumonia [Not Recovered/Not Resolved]
  - Gastrointestinal perforation [Fatal]
  - Coma [Fatal]
  - Hypotension [Fatal]
  - Pyrexia [Fatal]
  - Septic shock [Fatal]
  - Respiratory failure [Unknown]
  - Death [Fatal]
  - Diabetic hyperosmolar coma [Recovered/Resolved]
  - Peritonitis [Fatal]
  - Heart rate increased [Fatal]
  - Multi-organ failure [Fatal]

NARRATIVE: CASE EVENT DATE: 20151016
